FAERS Safety Report 8151802 (Version 16)
Quarter: 2013Q2

REPORT INFORMATION
  Report Type: Spontaneous
  Country: US (occurrence: US)
  Receive Date: 20110922
  Receipt Date: 20130422
  Transmission Date: 20140414
  Serious: Yes (Life-Threatening, Hospitalization, Other)
  Sender: FDA-Public Use
  Company Number: US-ASTRAZENECA-2011SE04238

PATIENT
  Age: 39 Year
  Sex: Female
  Weight: 68 kg

DRUGS (29)
  1. SEROQUEL [Suspect]
     Indication: BIPOLAR DISORDER
     Route: 048
     Dates: start: 2010
  2. SEROQUEL [Suspect]
     Indication: POST-TRAUMATIC STRESS DISORDER
     Route: 048
     Dates: start: 2010
  3. SEROQUEL [Suspect]
     Indication: MOOD SWINGS
     Route: 048
     Dates: start: 2010
  4. SEROQUEL [Suspect]
     Indication: BIPOLAR DISORDER
     Dosage: 2X25 MG IN THE MORNING AND 5X25 MG AT BEDTIME
     Route: 048
     Dates: start: 201011
  5. SEROQUEL [Suspect]
     Indication: POST-TRAUMATIC STRESS DISORDER
     Dosage: 2X25 MG IN THE MORNING AND 5X25 MG AT BEDTIME
     Route: 048
     Dates: start: 201011
  6. SEROQUEL [Suspect]
     Indication: MOOD SWINGS
     Dosage: 2X25 MG IN THE MORNING AND 5X25 MG AT BEDTIME
     Route: 048
     Dates: start: 201011
  7. SEROQUEL [Suspect]
     Indication: BIPOLAR DISORDER
     Dosage: 50 MG TWO TABLETS AT NIGHT
     Route: 048
  8. SEROQUEL [Suspect]
     Indication: POST-TRAUMATIC STRESS DISORDER
     Dosage: 50 MG TWO TABLETS AT NIGHT
     Route: 048
  9. SEROQUEL [Suspect]
     Indication: MOOD SWINGS
     Dosage: 50 MG TWO TABLETS AT NIGHT
     Route: 048
  10. SEROQUEL [Suspect]
     Indication: BIPOLAR DISORDER
     Route: 048
  11. SEROQUEL [Suspect]
     Indication: POST-TRAUMATIC STRESS DISORDER
     Route: 048
  12. SEROQUEL [Suspect]
     Indication: MOOD SWINGS
     Route: 048
  13. SEROQUEL [Suspect]
     Indication: BIPOLAR DISORDER
     Route: 048
  14. SEROQUEL [Suspect]
     Indication: POST-TRAUMATIC STRESS DISORDER
     Route: 048
  15. SEROQUEL [Suspect]
     Indication: MOOD SWINGS
     Route: 048
  16. SEROQUEL [Suspect]
     Indication: BIPOLAR DISORDER
     Route: 048
  17. SEROQUEL [Suspect]
     Indication: POST-TRAUMATIC STRESS DISORDER
     Route: 048
  18. SEROQUEL [Suspect]
     Indication: MOOD SWINGS
     Route: 048
  19. SEROQUEL [Suspect]
     Indication: BIPOLAR DISORDER
     Route: 048
     Dates: start: 201011
  20. SEROQUEL [Suspect]
     Indication: POST-TRAUMATIC STRESS DISORDER
     Route: 048
     Dates: start: 201011
  21. SEROQUEL [Suspect]
     Indication: MOOD SWINGS
     Route: 048
     Dates: start: 201011
  22. SEROQUEL [Suspect]
     Indication: BIPOLAR DISORDER
     Route: 048
     Dates: start: 2011
  23. SEROQUEL [Suspect]
     Indication: POST-TRAUMATIC STRESS DISORDER
     Route: 048
     Dates: start: 2011
  24. SEROQUEL [Suspect]
     Indication: MOOD SWINGS
     Route: 048
     Dates: start: 2011
  25. NEXIUM [Suspect]
     Route: 048
  26. AMBIEN [Concomitant]
     Dosage: AT BEDTIME
  27. HYDROCODONE [Concomitant]
     Indication: JOINT INJURY
  28. SYNTHROID [Concomitant]
     Indication: HYPOTHYROIDISM
  29. VICODIN [Concomitant]
     Indication: KNEE OPERATION

REACTIONS (39)
  - Suicide attempt [Unknown]
  - Ligament rupture [Unknown]
  - Ligament rupture [Unknown]
  - Suicidal ideation [Unknown]
  - Homicidal ideation [Unknown]
  - Depressed mood [Unknown]
  - Insomnia [Unknown]
  - Convulsion [Unknown]
  - Headache [Unknown]
  - Headache [Unknown]
  - Crying [Unknown]
  - Laziness [Unknown]
  - Feeling of despair [Unknown]
  - Eye pain [Unknown]
  - Nausea [Unknown]
  - Negative thoughts [Unknown]
  - Mania [Unknown]
  - Malaise [Unknown]
  - Adverse event [Unknown]
  - Feeling abnormal [Unknown]
  - Feeling of relaxation [Unknown]
  - Back injury [Unknown]
  - Aggression [Unknown]
  - Bipolar disorder [Unknown]
  - Staphylococcal infection [Unknown]
  - Anger [Unknown]
  - Therapeutic response unexpected [Unknown]
  - Reaction to drug excipients [Unknown]
  - Lethargy [Unknown]
  - Nightmare [Unknown]
  - Dyspnoea [Unknown]
  - Irritability [Unknown]
  - Abnormal dreams [Unknown]
  - Drug withdrawal syndrome [Unknown]
  - Drug dose omission [Unknown]
  - Off label use [Unknown]
  - Intentional drug misuse [Unknown]
  - Drug ineffective for unapproved indication [Unknown]
  - Drug ineffective [Unknown]
